FAERS Safety Report 23989208 (Version 4)
Quarter: 2024Q4

REPORT INFORMATION
  Report Type: Spontaneous
  Country: US (occurrence: US)
  Receive Date: 20240619
  Receipt Date: 20241117
  Transmission Date: 20250115
  Serious: Yes (Other)
  Sender: GLAXOSMITHKLINE
  Company Number: US-GLAXOSMITHKLINE-US2024073827

PATIENT

DRUGS (2)
  1. ZEJULA [Suspect]
     Active Substance: NIRAPARIB
     Indication: Ovarian cancer
     Dosage: 200 MG, QD
     Route: 048
     Dates: start: 20240418
  2. ZEJULA [Suspect]
     Active Substance: NIRAPARIB
     Dosage: 200 MG, QD
     Route: 048

REACTIONS (14)
  - Neuropathy peripheral [Not Recovered/Not Resolved]
  - Hepatitis B [Unknown]
  - Fatigue [Unknown]
  - Rash macular [Unknown]
  - Blood pressure increased [Unknown]
  - Blood pressure fluctuation [Unknown]
  - Red blood cell count decreased [Unknown]
  - Anaemia [Unknown]
  - Insomnia [Unknown]
  - Memory impairment [Unknown]
  - Bone density decreased [Unknown]
  - Tooth disorder [Unknown]
  - Dental caries [Unknown]
  - Product dose omission issue [Unknown]
